FAERS Safety Report 12462884 (Version 1)
Quarter: 2016Q2

REPORT INFORMATION
  Report Type: Spontaneous
  Country: US (occurrence: US)
  Receive Date: 20160614
  Receipt Date: 20160614
  Transmission Date: 20160815
  Serious: Yes (Hospitalization)
  Sender: FDA-Public Use
  Company Number: US-JNJFOC-20160425843

PATIENT
  Sex: Female
  Weight: 93.44 kg

DRUGS (2)
  1. METFORMIN [Concomitant]
     Active Substance: METFORMIN HYDROCHLORIDE
     Indication: TYPE 1 DIABETES MELLITUS
     Route: 048
     Dates: start: 20150428, end: 20150818
  2. INVOKANA [Suspect]
     Active Substance: CANAGLIFLOZIN
     Indication: TYPE 1 DIABETES MELLITUS
     Route: 048
     Dates: start: 20150818, end: 20150826

REACTIONS (3)
  - Product use issue [Recovered/Resolved]
  - Off label use [Recovered/Resolved]
  - Diabetic ketoacidosis [Recovered/Resolved]
